FAERS Safety Report 6633162-6 (Version None)
Quarter: 2010Q1

REPORT INFORMATION
  Report Type: 
  Country: None (occurrence: None)
  Receive Date: 20100312
  Receipt Date: 20100303
  Transmission Date: 20100710
  Serious: Yes (Hospitalization, Other)
  Sender: FDA-Public Use
  Company Number: JP-PFIZER INC-2008070215

PATIENT
  Age: 79 Year
  Sex: Female

DRUGS (3)
  1. NORVASC [Suspect]
     Dosage: 5 MG, UNK
     Route: 048
     Dates: end: 20080801
  2. BLOPRESS [Suspect]
     Dosage: 4 MG, UNK
     Route: 048
  3. ASPIRIN [Suspect]
     Dosage: 100 MG, UNK
     Route: 048

REACTIONS (3)
  - HYPOTENSION [None]
  - INTENTIONAL OVERDOSE [None]
  - SUICIDE ATTEMPT [None]
